FAERS Safety Report 5964575-3 (Version None)
Quarter: 2008Q4

REPORT INFORMATION
  Report Type: 
  Country: None (occurrence: None)
  Receive Date: 20081122
  Receipt Date: 20081122
  Transmission Date: 20090506
  Serious: Yes (Other)
  Sender: FDA-Public Use
  Company Number: None

PATIENT
  Age: 76 Year
  Sex: Female
  Weight: 63.5036 kg

DRUGS (3)
  1. LYRICA [Suspect]
     Indication: ARTHRALGIA
     Dosage: 50 MG 1 CAPSULE TWICE A DAY MOUTH USED IT FOR 2 DAYS
     Route: 048
     Dates: start: 20080930, end: 20081002
  2. LYRICA [Suspect]
     Indication: BACK PAIN
     Dosage: 50 MG 1 CAPSULE TWICE A DAY MOUTH USED IT FOR 2 DAYS
     Route: 048
     Dates: start: 20080930, end: 20081002
  3. LYRICA [Suspect]
     Indication: SINUS HEADACHE
     Dosage: 50 MG 1 CAPSULE TWICE A DAY MOUTH USED IT FOR 2 DAYS
     Route: 048
     Dates: start: 20080930, end: 20081002

REACTIONS (5)
  - EYE DISORDER [None]
  - FEAR [None]
  - VISION BLURRED [None]
  - VITREOUS DETACHMENT [None]
  - VITREOUS DISORDER [None]
